FAERS Safety Report 20584200 (Version 1)
Quarter: 2022Q1

REPORT INFORMATION
  Report Type: Other
  Country: US (occurrence: None)
  Receive Date: 20220311
  Receipt Date: 20220311
  Transmission Date: 20220423
  Serious: Yes (Other)
  Sender: FDA-Public Use
  Company Number: US-ROCHE-3040382

PATIENT
  Sex: Female
  Weight: 57 kg

DRUGS (4)
  1. OCREVUS [Suspect]
     Active Substance: OCRELIZUMAB
     Indication: Relapsing-remitting multiple sclerosis
     Route: 042
     Dates: start: 201810
  2. BACLOFEN [Concomitant]
     Active Substance: BACLOFEN
     Route: 048
  3. VALSARTAN [Concomitant]
     Active Substance: VALSARTAN
  4. VALTREX [Concomitant]
     Active Substance: VALACYCLOVIR HYDROCHLORIDE
     Route: 048

REACTIONS (8)
  - Coeliac disease [Unknown]
  - Back pain [Unknown]
  - Gait disturbance [Unknown]
  - Flank pain [Unknown]
  - Tandem gait test abnormal [Unknown]
  - B-lymphocyte count decreased [Unknown]
  - Monocyte count increased [Unknown]
  - Platelet count increased [Unknown]
